FAERS Safety Report 15372817 (Version 2)
Quarter: 2018Q4

REPORT INFORMATION
  Report Type: Spontaneous
  Country: US (occurrence: US)
  Receive Date: 20180912
  Receipt Date: 20181005
  Transmission Date: 20190204
  Serious: No
  Sender: FDA-Public Use
  Company Number: US-UNITED THERAPEUTICS-UNT-2018-012033

PATIENT
  Age: 72 Year
  Sex: Female
  Weight: 81.63 kg

DRUGS (4)
  1. TYVASO [Suspect]
     Active Substance: TREPROSTINIL
     Indication: PULMONARY HYPERTENSION
     Dosage: 18-54 MICROGRAMS, QID
     Dates: start: 20180724
  2. REVATIO [Concomitant]
     Active Substance: SILDENAFIL CITRATE
     Indication: PRODUCT USED FOR UNKNOWN INDICATION
     Route: 065
  3. LETAIRIS [Concomitant]
     Active Substance: AMBRISENTAN
     Indication: PRODUCT USED FOR UNKNOWN INDICATION
     Route: 065
  4. TYVASO [Suspect]
     Active Substance: TREPROSTINIL
     Indication: PULMONARY ARTERIAL HYPERTENSION
     Dosage: UNK

REACTIONS (9)
  - Dyspepsia [Unknown]
  - Throat irritation [Not Recovered/Not Resolved]
  - Headache [Unknown]
  - Therapy non-responder [Unknown]
  - Cough [Recovering/Resolving]
  - Anxiety [Unknown]
  - Fatigue [Unknown]
  - Hyperhidrosis [Unknown]
  - Feeling jittery [Unknown]

NARRATIVE: CASE EVENT DATE: 2018
